FAERS Safety Report 19085542 (Version 3)
Quarter: 2021Q3

REPORT INFORMATION
  Report Type: Report from Study
  Country: US (occurrence: US)
  Receive Date: 20210401
  Receipt Date: 20210816
  Transmission Date: 20211014
  Serious: Yes (Other)
  Sender: FDA-Public Use
  Company Number: NVSC2021US074461

PATIENT
  Sex: Female

DRUGS (4)
  1. PIQRAY [Suspect]
     Active Substance: ALPELISIB
     Indication: BREAST CANCER
     Dosage: 300 MG, QD
     Route: 048
     Dates: start: 20210318
  2. PIQRAY [Suspect]
     Active Substance: ALPELISIB
     Indication: HYPERGLYCAEMIA
     Dosage: 150 MG, BID
     Route: 065
  3. FASLODEX [Concomitant]
     Active Substance: FULVESTRANT
     Indication: PRODUCT USED FOR UNKNOWN INDICATION
     Dosage: 500 MG, Q4W
     Route: 030
     Dates: start: 20210304, end: 20210701
  4. XGEVA [Concomitant]
     Active Substance: DENOSUMAB
     Indication: PRODUCT USED FOR UNKNOWN INDICATION
     Dosage: 120 UNK, Q4W
     Route: 058
     Dates: start: 20200305, end: 20210701

REACTIONS (5)
  - Hyperglycaemia [Unknown]
  - Somnolence [Unknown]
  - Fatigue [Unknown]
  - Malignant pleural effusion [Unknown]
  - Metastases to chest wall [Unknown]
